FAERS Safety Report 16880974 (Version 2)
Quarter: 2019Q4

REPORT INFORMATION
  Report Type: Spontaneous
  Country: US (occurrence: US)
  Receive Date: 20191003
  Receipt Date: 20191007
  Transmission Date: 20200122
  Serious: No
  Sender: FDA-Public Use
  Company Number: US-PFIZER INC-2018512068

PATIENT
  Age: 76 Year
  Sex: Male
  Weight: 94.79 kg

DRUGS (1)
  1. LYRICA [Suspect]
     Active Substance: PREGABALIN
     Dosage: 75 MG, 1X/DAY (NIGHTLY/ BEDTIME)
     Route: 048

REACTIONS (2)
  - Hypokinesia [Unknown]
  - Tremor [Unknown]

NARRATIVE: CASE EVENT DATE: 2019
